FAERS Safety Report 8962226 (Version 1)
Quarter: 2012Q4

REPORT INFORMATION
  Report Type: Report from Study
  Country: ES (occurrence: ES)
  Receive Date: 20121211
  Receipt Date: 20121211
  Transmission Date: 20130627
  Serious: Yes (Hospitalization)
  Sender: FDA-Public Use
  Company Number: ES-MERCK-1212ESP001294

PATIENT
  Age: 54 Year
  Sex: Female
  Weight: 62.5 kg

DRUGS (6)
  1. TEMOZOLOMIDE [Suspect]
     Indication: GLIOBLASTOMA MULTIFORME
     Dosage: 250 mg, qw
     Route: 048
     Dates: start: 20110328, end: 20110426
  2. BEVACIZUMAB [Suspect]
     Indication: GLIOBLASTOMA MULTIFORME
     Dosage: 660 mg, qow
     Route: 042
     Dates: start: 20110328, end: 20110426
  3. ACETAMINOPHEN [Concomitant]
     Dosage: daily dose: 500mg
     Dates: start: 2009
  4. ENALAPRIL MALEATE [Concomitant]
     Dosage: daily dose: 850mg
     Dates: start: 20110411
  5. DEXAMETHASONE [Concomitant]
     Dosage: UNK
     Dates: start: 20110418
  6. PANTOPRAZOLE [Concomitant]
     Dosage: daiy dose: 20mg
     Dates: start: 20110528

REACTIONS (3)
  - Respiratory tract infection [Recovered/Resolved]
  - Neutropenia [Unknown]
  - Bronchospasm [Unknown]
